FAERS Safety Report 7412178-6 (Version None)
Quarter: 2011Q2

REPORT INFORMATION
  Report Type: 
  Country: None (occurrence: None)
  Receive Date: 20110405
  Receipt Date: 20110330
  Transmission Date: 20111010
  Serious: Yes (Death, Hospitalization)
  Sender: FDA-Public Use
  Company Number: 2010US004997

PATIENT
  Age: 59 Year
  Sex: Female

DRUGS (13)
  1. SULFAMETHOXAZOLE [Concomitant]
  2. DIPHEM/ATROEIM [Concomitant]
  3. ASPIRIN [Concomitant]
  4. PROMETHAZINE [Concomitant]
  5. ALLOPURINOL [Concomitant]
  6. BUPROPION (BUPROPION) [Concomitant]
  7. PLAVIX [Concomitant]
  8. OMEPRAZOLE [Concomitant]
  9. PREDNISONE [Concomitant]
  10. NITROGLYCERIN [Concomitant]
  11. PROGRAF [Suspect]
     Indication: RENAL TRANSPLANT
     Dosage: 3 MG, BID, ORAL
     Route: 048
     Dates: start: 20000106, end: 20110101
  12. METOPROLOL (METOPROLOL) [Concomitant]
  13. PRAVASTATIN [Concomitant]

REACTIONS (4)
  - POST PROCEDURAL INFECTION [None]
  - CARDIAC OPERATION [None]
  - DYSPNOEA [None]
  - HERNIA [None]
